FAERS Safety Report 6893536-5 (Version None)
Quarter: 2010Q3

REPORT INFORMATION
  Report Type: 
  Country: None (occurrence: None)
  Receive Date: 20100731
  Receipt Date: 20091009
  Transmission Date: 20110219
  Serious: No
  Sender: FDA-Public Use
  Company Number: US-PFIZER INC-2009262608

PATIENT
  Age: 20 Year
  Sex: Male

DRUGS (2)
  1. DOXYCYCLINE HYCLATE [Suspect]
     Indication: ACNE
     Dosage: ONCE DAILY
     Dates: start: 20090729
  2. DIFFERIN [Suspect]

REACTIONS (3)
  - ERYTHEMA [None]
  - PAIN [None]
  - SKIN EXFOLIATION [None]
